FAERS Safety Report 6245702-X (Version None)
Quarter: 2009Q2

REPORT INFORMATION
  Report Type: 
  Country: None (occurrence: None)
  Receive Date: 20090625
  Receipt Date: 20090615
  Transmission Date: 20091009
  Serious: Yes (Hospitalization, Other)
  Sender: FDA-Public Use
  Company Number: US-GENENTECH-285430

PATIENT

DRUGS (2)
  1. TRASTUZUMAB [Suspect]
     Indication: BREAST CANCER METASTATIC
     Dosage: 6 MG/KG, Q3W
     Route: 065
  2. VINFLUNINE [Suspect]
     Indication: BREAST CANCER METASTATIC
     Dosage: 280 MG/M2, Q3W
     Route: 042

REACTIONS (11)
  - ABDOMINAL PAIN [None]
  - BACK PAIN [None]
  - CHEST PAIN [None]
  - CONSTIPATION [None]
  - DIARRHOEA [None]
  - DISEASE PROGRESSION [None]
  - GASTROINTESTINAL TOXICITY [None]
  - INFUSION SITE PAIN [None]
  - LUNG DISORDER [None]
  - NEUTROPENIA [None]
  - PAIN [None]
